FAERS Safety Report 10558546 (Version 4)
Quarter: 2015Q3

REPORT INFORMATION
  Report Type: Report from Study
  Country: DE (occurrence: DE)
  Receive Date: 20141031
  Receipt Date: 20150806
  Transmission Date: 20151125
  Serious: Yes (Hospitalization, Other)
  Sender: FDA-Public Use
  Company Number: DE-ABBVIE-14K-062-1273287-00

PATIENT
  Age: 73 Year
  Sex: Male
  Weight: 66 kg

DRUGS (13)
  1. HUMIRA [Suspect]
     Active Substance: ADALIMUMAB
     Indication: RHEUMATOID ARTHRITIS
     Route: 058
     Dates: start: 20140422, end: 20140712
  2. HUMIRA [Suspect]
     Active Substance: ADALIMUMAB
     Route: 058
     Dates: start: 2014, end: 20140811
  3. ARCOXIA [Concomitant]
     Active Substance: ETORICOXIB
     Indication: PRODUCT USED FOR UNKNOWN INDICATION
     Dates: start: 200802
  4. DEKRISTOL [Concomitant]
     Active Substance: CHOLECALCIFEROL
     Indication: PRODUCT USED FOR UNKNOWN INDICATION
     Dosage: 0-0-1, NEXT DOSE ON 25-AUG-2014
  5. ZIENAM [Suspect]
     Active Substance: CILASTATIN SODIUM\IMIPENEM
     Indication: URINARY TRACT INFECTION
     Route: 065
     Dates: start: 201408, end: 201408
  6. METOPROLOL [Concomitant]
     Active Substance: METOPROLOL
     Indication: PRODUCT USED FOR UNKNOWN INDICATION
     Dosage: 1/2-0-0
  7. PLAVIX [Concomitant]
     Active Substance: CLOPIDOGREL BISULFATE
     Indication: PRODUCT USED FOR UNKNOWN INDICATION
     Dosage: 1-0-0
  8. ENBREL [Concomitant]
     Active Substance: ETANERCEPT
     Indication: PRODUCT USED FOR UNKNOWN INDICATION
     Dates: start: 201409
  9. RAMIPRIL + HIDROCLOROTIAZIDA [Concomitant]
     Active Substance: HYDROCHLOROTHIAZIDE\RAMIPRIL
     Indication: PRODUCT USED FOR UNKNOWN INDICATION
     Dosage: 5/25MG, 1/2-0-1/2
  10. PREDNISOLONE. [Concomitant]
     Active Substance: PREDNISOLONE
     Indication: INFLAMMATORY MARKER INCREASED
     Dates: start: 20080205
  11. PREDNISOLONE. [Concomitant]
     Active Substance: PREDNISOLONE
     Indication: DRUG HYPERSENSITIVITY
     Dosage: DOSE REDUCTION AFTER ADJUSTMENT TO ENBREL
  12. PANTOZOL [Concomitant]
     Active Substance: PANTOPRAZOLE SODIUM
     Indication: PRODUCT USED FOR UNKNOWN INDICATION
     Dosage: 1-0-0
  13. SIMVASTATIN. [Concomitant]
     Active Substance: SIMVASTATIN
     Indication: PRODUCT USED FOR UNKNOWN INDICATION
     Dosage: 0-0-1

REACTIONS (19)
  - Fatigue [Recovering/Resolving]
  - Interstitial lung disease [Not Recovered/Not Resolved]
  - Adverse event [Unknown]
  - Rales [Unknown]
  - Dry throat [Recovering/Resolving]
  - Drug hypersensitivity [Recovering/Resolving]
  - Laboratory test abnormal [Unknown]
  - Cholelithiasis [Unknown]
  - Hepatic cyst [Unknown]
  - General physical health deterioration [Recovered/Resolved]
  - Escherichia urinary tract infection [Unknown]
  - Lung disorder [Unknown]
  - Neurological symptom [Recovering/Resolving]
  - Throat irritation [Recovering/Resolving]
  - Red blood cell sedimentation rate increased [Unknown]
  - Breath sounds abnormal [Unknown]
  - Cough [Recovered/Resolved]
  - Inflammatory marker increased [Recovered/Resolved]
  - Dyspnoea [Recovering/Resolving]

NARRATIVE: CASE EVENT DATE: 2014
